FAERS Safety Report 16898794 (Version 1)
Quarter: 2019Q4

REPORT INFORMATION
  Report Type: Spontaneous
  Country: US (occurrence: US)
  Receive Date: 20191008
  Receipt Date: 20191008
  Transmission Date: 20200122
  Serious: Yes (Other)
  Sender: FDA-Public Use
  Company Number: None

PATIENT
  Age: 38 Year
  Sex: Female
  Weight: 74.7 kg

DRUGS (1)
  1. THRIVITE RX 29-1 [Suspect]
     Active Substance: DIETARY SUPPLEMENT\FOLIC ACID\VITAMINS
     Route: 048

REACTIONS (1)
  - Product contamination microbial [None]

NARRATIVE: CASE EVENT DATE: 20190911
